FAERS Safety Report 4299472-5 (Version None)
Quarter: 2004Q1

REPORT INFORMATION
  Report Type: 
  Country: None (occurrence: None)
  Receive Date: 20040219
  Receipt Date: 20040217
  Transmission Date: 20041129
  Serious: Yes (Other)
  Sender: FDA-Public Use
  Company Number: US-GLAXOSMITHKLINE-A0498518A

PATIENT
  Age: 82 Year
  Sex: Male

DRUGS (1)
  1. CEFTIN [Suspect]
     Dosage: 250MG TWICE PER DAY
     Route: 048
     Dates: start: 20040214

REACTIONS (1)
  - DEAFNESS [None]
